FAERS Safety Report 8916668 (Version 3)
Quarter: 2013Q1

REPORT INFORMATION
  Report Type: Spontaneous
  Country: JP (occurrence: JP)
  Receive Date: 20121120
  Receipt Date: 20130211
  Transmission Date: 20140127
  Serious: Yes (Hospitalization)
  Sender: FDA-Public Use
  Company Number: JP-SHIRE-ALL1-2012-05642

PATIENT
  Age: 82 Year
  Sex: Female

DRUGS (10)
  1. FOSRENOL [Suspect]
     Indication: BLOOD PHOSPHORUS ABNORMAL
     Dosage: 1500 MG, UNKNOWN
     Route: 048
     Dates: start: 20091019, end: 20120510
  2. FOSRENOL [Suspect]
     Indication: HYPERPHOSPHATAEMIA
  3. OTHER ANTIHYPERTENSIVES [Concomitant]
     Indication: PRODUCT USED FOR UNKNOWN INDICATION
     Dosage: UNK, UNKNOWN
     Route: 065
  4. MICARDIS [Concomitant]
     Indication: PRODUCT USED FOR UNKNOWN INDICATION
     Dosage: 40 MG, UNKNOWN
     Route: 048
  5. FERROMIA                           /00023520/ [Concomitant]
     Indication: PRODUCT USED FOR UNKNOWN INDICATION
     Dosage: 1.2 G, UNKNOWN
     Route: 048
  6. ZYLORIC [Concomitant]
     Indication: PRODUCT USED FOR UNKNOWN INDICATION
     Dosage: 50 MG, UNKNOWN
     Route: 048
  7. CERCINE [Concomitant]
     Indication: PRODUCT USED FOR UNKNOWN INDICATION
     Dosage: 2 MG, UNKNOWN
     Route: 048
  8. PURSENNID /00142207/ [Concomitant]
     Indication: PRODUCT USED FOR UNKNOWN INDICATION
     Dosage: 48 MG, UNKNOWN
     Route: 048
  9. GASMOTIN [Concomitant]
     Indication: PRODUCT USED FOR UNKNOWN INDICATION
     Dosage: 15 MG, UNKNOWN
     Route: 048
  10. REGPARA [Concomitant]
     Indication: PRODUCT USED FOR UNKNOWN INDICATION
     Dosage: 2.5 MG, UNKNOWN
     Route: 048

REACTIONS (3)
  - Peritonitis [Recovered/Resolved]
  - X-ray gastrointestinal tract abnormal [Unknown]
  - Wrong technique in drug usage process [Unknown]
